FAERS Safety Report 9321977 (Version 1)
Quarter: 2013Q2

REPORT INFORMATION
  Report Type: Spontaneous
  Country: US (occurrence: None)
  Receive Date: 20130530
  Receipt Date: 20130530
  Transmission Date: 20140414
  Serious: Yes (Other)
  Sender: FDA-Public Use
  Company Number: None

PATIENT
  Age: 65 Year
  Sex: Female
  Weight: 54.43 kg

DRUGS (1)
  1. AZITHROMYCIN 250 MG [Suspect]
     Indication: SINUSITIS
     Dosage: 500 MG FIRST DAY PO
     Route: 048
     Dates: start: 20120810, end: 20120814

REACTIONS (3)
  - Myocardial infarction [None]
  - Blood potassium decreased [None]
  - Electrocardiogram QT prolonged [None]
